FAERS Safety Report 5463776-0 (Version None)
Quarter: 2007Q3

REPORT INFORMATION
  Report Type: 
  Country: None (occurrence: None)
  Receive Date: 20070919
  Receipt Date: 20070904
  Transmission Date: 20080115
  Serious: Yes (Other)
  Sender: FDA-Public Use
  Company Number: 2007BI012091

PATIENT
  Age: 50 Year
  Sex: Female
  Weight: 95.709 kg

DRUGS (13)
  1. NATALIZUMAB [Suspect]
     Indication: MULTIPLE SCLEROSIS
     Dosage: 300 MG; QM; IV
     Route: 042
     Dates: start: 20061001, end: 20070301
  2. NATALIZUMAB [Suspect]
     Indication: MULTIPLE SCLEROSIS
     Dosage: 300 MG; QM; IV
     Route: 042
     Dates: start: 20070601
  3. TOPAMAX [Concomitant]
  4. KEPPRA [Concomitant]
  5. ESTROGEN [Concomitant]
  6. DHEA-SR [Concomitant]
  7. XANAX [Concomitant]
  8. AXID [Concomitant]
  9. AMBIEN CR [Concomitant]
  10. SYNTHROID [Concomitant]
  11. IMITREX [Concomitant]
  12. CYMBALTA [Concomitant]
  13. ADDERALL 20 [Concomitant]

REACTIONS (8)
  - ANTINUCLEAR ANTIBODY INCREASED [None]
  - BALANCE DISORDER [None]
  - CONSTIPATION [None]
  - DIZZINESS [None]
  - DYSPEPSIA [None]
  - HYPOKALAEMIA [None]
  - MUSCULAR WEAKNESS [None]
  - PANCYTOPENIA [None]
